FAERS Safety Report 14614901 (Version 1)
Quarter: 2018Q1

REPORT INFORMATION
  Report Type: Report from Study
  Country: DE (occurrence: DE)
  Receive Date: 20180308
  Receipt Date: 20180308
  Transmission Date: 20180509
  Serious: Yes (Hospitalization)
  Sender: FDA-Public Use
  Company Number: DE-PFIZER INC-2018092350

PATIENT
  Age: 71 Year
  Sex: Male
  Weight: 67.5 kg

DRUGS (5)
  1. FENTANYL. [Suspect]
     Active Substance: FENTANYL
     Dosage: UNK
  2. AVASTIN [Suspect]
     Active Substance: BEVACIZUMAB
     Dosage: 650 MG, DAILY
     Route: 042
     Dates: start: 20101223, end: 20101223
  3. AVASTIN [Suspect]
     Active Substance: BEVACIZUMAB
     Dosage: 650 MG, DAILY
     Route: 042
     Dates: start: 20101209, end: 20101209
  4. AVASTIN [Suspect]
     Active Substance: BEVACIZUMAB
     Indication: METASTATIC RENAL CELL CARCINOMA
     Dosage: 10 MG/KG, UNK
     Route: 042
  5. ROFERON-A [Suspect]
     Active Substance: INTERFERON ALFA-2A
     Indication: METASTATIC RENAL CELL CARCINOMA
     Dosage: 27 MIU IU(1000000S) EVERY WEEK
     Dates: start: 20101209, end: 20110103

REACTIONS (3)
  - Confusional state [Recovered/Resolved]
  - Gait disturbance [Recovered/Resolved]
  - Overdose [Unknown]

NARRATIVE: CASE EVENT DATE: 20101228
